FAERS Safety Report 26060252 (Version 3)
Quarter: 2025Q4

REPORT INFORMATION
  Report Type: Spontaneous
  Country: US (occurrence: US)
  Receive Date: 20251118
  Receipt Date: 20251216
  Transmission Date: 20260117
  Serious: Yes (Hospitalization, Other)
  Sender: JOHNSON AND JOHNSON
  Company Number: US-JNJFOC-20251142338

PATIENT
  Sex: Male

DRUGS (1)
  1. CARVYKTI [Suspect]
     Active Substance: CILTACABTAGENE AUTOLEUCEL
     Indication: Product used for unknown indication

REACTIONS (7)
  - Pyrexia [Recovering/Resolving]
  - Delirium [Unknown]
  - Hospitalisation [Unknown]
  - Dizziness [Unknown]
  - Cognitive disorder [Unknown]
  - Dysstasia [Unknown]
  - Diarrhoea [Unknown]
